FAERS Safety Report 6905553-7 (Version None)
Quarter: 2010Q3

REPORT INFORMATION
  Report Type: 
  Country: None (occurrence: None)
  Receive Date: 20100802
  Receipt Date: 20100726
  Transmission Date: 20110219
  Serious: Yes (Hospitalization)
  Sender: FDA-Public Use
  Company Number: AX238-10-0116

PATIENT
  Age: 49 Year
  Sex: Female
  Weight: 91 kg

DRUGS (7)
  1. ABRAXANE [Suspect]
     Indication: BREAST CANCER
  2. ADRIAMYCIN PFS [Suspect]
     Indication: BREAST CANCER
  3. CYTOXAN [Suspect]
     Indication: BREAST CANCER
  4. HYDROCHLOROTHIAZIDE [Concomitant]
  5. SOMA [Concomitant]
  6. ACIPHEX [Concomitant]
  7. LORTAB (VICODIN) [Concomitant]

REACTIONS (5)
  - ABDOMINAL PAIN [None]
  - COLITIS [None]
  - DIARRHOEA [None]
  - NAUSEA [None]
  - VOMITING [None]
